FAERS Safety Report 4293294-7 (Version None)
Quarter: 2004Q1

REPORT INFORMATION
  Report Type: 
  Country: None (occurrence: None)
  Receive Date: 20040210
  Receipt Date: 20040210
  Transmission Date: 20041129
  Serious: Yes (Hospitalization)
  Sender: FDA-Public Use
  Company Number: None

PATIENT
  Age: 79 Year
  Sex: Male
  Weight: 84.5 kg

DRUGS (10)
  1. HYDROCHLOROTHIAZIDE [Suspect]
     Indication: HYPERTENSION
     Dosage: 25 MG QD PO
     Route: 048
  2. RABEPRAZOLE NA [Concomitant]
  3. TRAVOPROST [Concomitant]
  4. FLUTICASONE PROP [Concomitant]
  5. QUININE SULFATE [Concomitant]
  6. TEMAZEPAM [Concomitant]
  7. TERAZOSIN HCL [Concomitant]
  8. ASPIRIN [Concomitant]
  9. HYDROCHLOROTHIAZIDE [Concomitant]
  10. GABAPENTIN [Concomitant]

REACTIONS (2)
  - HYPONATRAEMIA [None]
  - POLYDIPSIA [None]
